FAERS Safety Report 6940139-X (Version None)
Quarter: 2010Q3

REPORT INFORMATION
  Report Type: 
  Country: None (occurrence: None)
  Receive Date: 20100820
  Receipt Date: 20100811
  Transmission Date: 20110219
  Serious: Yes (Death, Life-Threatening, Hospitalization)
  Sender: FDA-Public Use
  Company Number: 2009-00863

PATIENT
  Age: 60 Year
  Sex: Male
  Weight: 80 kg

DRUGS (6)
  1. VELCADE [Suspect]
     Indication: MULTIPLE MYELOMA
     Dates: start: 20081001, end: 20081009
  2. DEXAMETHASONE [Concomitant]
  3. CYCLOPHOSPHAMIDE [Concomitant]
  4. ERYTHROPOIETIN HUMAN (ERYTHROPOIETIN HUMAN) [Concomitant]
  5. MOEX (MOEXIPRIL) [Concomitant]
  6. SIMVASTATIN [Concomitant]

REACTIONS (16)
  - APLASIA [None]
  - ASTHENIA [None]
  - ATRIAL FIBRILLATION [None]
  - CONFUSIONAL STATE [None]
  - COUGH [None]
  - CYTOLYTIC HEPATITIS [None]
  - DYSPNOEA [None]
  - GENERAL PHYSICAL HEALTH DETERIORATION [None]
  - HYPERGLYCAEMIA [None]
  - LEUKOPENIA [None]
  - LUNG INFECTION [None]
  - MALIGNANT NEOPLASM PROGRESSION [None]
  - MULTIPLE MYELOMA [None]
  - PYREXIA [None]
  - RALES [None]
  - TACHYARRHYTHMIA [None]
